FAERS Safety Report 10398657 (Version 1)
Quarter: 2014Q1

REPORT INFORMATION
  Report Type: Spontaneous
  Country: US (occurrence: None)
  Receive Date: 20130815
  Receipt Date: 20130815
  Transmission Date: 20141002
  Serious: Yes (Hospitalization, Other)
  Sender: FDA-Public Use
  Company Number: ADR-2012-01220

PATIENT
  Sex: Female

DRUGS (3)
  1. BACLOFEN INTRATHECAL (BACLOFEN INJECTION) 150 MCG/ML [Suspect]
     Dosage: SEE B5
  2. BUPIVACAINE, MORPHINE INTRATHECAL [Concomitant]
  3. MORPHINE INTRATHECAL (80MG/ML, 3.844 MG/DAY) [Concomitant]

REACTIONS (6)
  - Pain in extremity [None]
  - Cystitis [None]
  - Pneumonia [None]
  - Pain [None]
  - Drug withdrawal syndrome [None]
  - Unevaluable event [None]
